FAERS Safety Report 7359674-8 (Version None)
Quarter: 2011Q1

REPORT INFORMATION
  Report Type: 
  Country: None (occurrence: None)
  Receive Date: 20110317
  Receipt Date: 20100311
  Transmission Date: 20110831
  Serious: No
  Sender: FDA-Public Use
  Company Number: US-PFIZER INC-2010033656

PATIENT
  Sex: Female

DRUGS (11)
  1. IBANDRONATE SODIUM [Concomitant]
     Dosage: UNK,  MONTHLY
  2. ZOCOR [Concomitant]
     Dosage: 20 MG, 1X/DAY
  3. NORVASC [Suspect]
     Indication: BLOOD PRESSURE
     Dosage: 5 MG, 1X/DAY
     Dates: start: 20100227
  4. ACETYLSALICYLIC ACID [Concomitant]
     Dosage: 81 MG, UNK
  5. CELEXA [Concomitant]
     Dosage: 40 MG, 1X/DAY
  6. KEPPRA [Concomitant]
     Dosage: 225 MG, 2X/DAY
  7. PROTONIX [Concomitant]
     Dosage: 40 MG, 1X/DAY
  8. CALTRATE [Concomitant]
     Dosage: UNK, 2X/DAY
  9. SYNTHROID [Concomitant]
     Indication: THYROID DISORDER
     Dosage: 100 UG, 1X/DAY
  10. XALATAN [Concomitant]
     Dosage: UNK, 1X/DAY
  11. TIMOLOL [Concomitant]
     Dosage: UNK, 1X/DAY

REACTIONS (5)
  - DIARRHOEA [None]
  - ABDOMINAL PAIN UPPER [None]
  - VOMITING [None]
  - DECREASED APPETITE [None]
  - NAUSEA [None]
